FAERS Safety Report 16454059 (Version 1)
Quarter: 2019Q2

REPORT INFORMATION
  Report Type: Spontaneous
  Country: GB (occurrence: GB)
  Receive Date: 20190620
  Receipt Date: 20190620
  Transmission Date: 20190711
  Serious: Yes (Disabling)
  Sender: FDA-Public Use
  Company Number: GB-CIPLA LTD.-2019GB04558

PATIENT

DRUGS (1)
  1. CETIRIZINE [Suspect]
     Active Substance: CETIRIZINE HYDROCHLORIDE
     Indication: RASH
     Dosage: 5 MILLIGRAM
     Route: 048
     Dates: start: 20171201

REACTIONS (3)
  - Withdrawal syndrome [Not Recovered/Not Resolved]
  - Pruritus generalised [Not Recovered/Not Resolved]
  - Skin burning sensation [Unknown]

NARRATIVE: CASE EVENT DATE: 20180101
